FAERS Safety Report 5500903-0 (Version None)
Quarter: 2007Q4

REPORT INFORMATION
  Report Type: 
  Country: None (occurrence: None)
  Receive Date: 20071029
  Receipt Date: 20071018
  Transmission Date: 20080405
  Serious: Yes (Death, Hospitalization)
  Sender: FDA-Public Use
  Company Number: PT-BAXTER-2007BH008031

PATIENT
  Sex: Female

DRUGS (4)
  1. EXTRANEAL [Suspect]
     Indication: PERITONEAL DIALYSIS
     Route: 033
     Dates: start: 20050411
  2. DIANEAL [Suspect]
     Indication: PERITONEAL DIALYSIS
     Dosage: DOSE UNIT:UNKNOWN
     Route: 033
     Dates: start: 20050411
  3. BACTRIM [Suspect]
     Indication: INFECTION
     Dosage: DOSE UNIT:UNKNOWN
     Route: 065
     Dates: start: 20070904
  4. INSULIN [Suspect]
     Indication: DIABETES MELLITUS
     Dosage: DOSE UNIT:UNKNOWN
     Route: 065
     Dates: start: 20070904

REACTIONS (2)
  - CATHETER RELATED INFECTION [None]
  - STEVENS-JOHNSON SYNDROME [None]
